FAERS Safety Report 4643759-0 (Version None)
Quarter: 2005Q2

REPORT INFORMATION
  Report Type: 
  Country: None (occurrence: None)
  Receive Date: 20050425
  Receipt Date: 20050413
  Transmission Date: 20051028
  Serious: Yes (Other)
  Sender: FDA-Public Use
  Company Number: IT-JNJFOC-20050400401

PATIENT
  Sex: Male

DRUGS (3)
  1. REMICADE [Suspect]
     Indication: ANKYLOSING SPONDYLITIS
     Route: 042
  2. SALAZOPYRIN [Concomitant]
     Route: 049
  3. METACEN [Concomitant]
     Route: 049

REACTIONS (1)
  - PSORIASIS [None]
